FAERS Safety Report 26190799 (Version 1)
Quarter: 2025Q4

REPORT INFORMATION
  Report Type: Spontaneous
  Country: SA (occurrence: SA)
  Receive Date: 20251223
  Receipt Date: 20251223
  Transmission Date: 20260117
  Serious: Yes (Hospitalization)
  Sender: MACLEODS
  Company Number: SA-MACLEODS PHARMA-MAC2025057210

PATIENT

DRUGS (3)
  1. APIXABAN [Suspect]
     Active Substance: APIXABAN
     Indication: Cardiac ventricular thrombosis
     Route: 065
  2. ASPIRIN [Concomitant]
     Active Substance: ASPIRIN
     Route: 065
  3. CLOPIDOGREL [Concomitant]
     Active Substance: CLOPIDOGREL BISULFATE
     Indication: Antiplatelet therapy
     Route: 065

REACTIONS (1)
  - Treatment failure [Unknown]
